FAERS Safety Report 8279068-0 (Version None)
Quarter: 2012Q2

REPORT INFORMATION
  Report Type: 
  Country: None (occurrence: None)
  Receive Date: 20120412
  Receipt Date: 20120410
  Transmission Date: 20120825
  Serious: Yes (Other)
  Sender: FDA-Public Use
  Company Number: PHHY2012ES030350

PATIENT
  Age: 48 Year
  Sex: Male
  Weight: 90 kg

DRUGS (20)
  1. ACETAMINOPHEN [Interacting]
  2. ALLOPURINOL [Interacting]
  3. TARGOCID [Interacting]
  4. NOXAFIL [Interacting]
  5. ENOXAPARIN SODIUM [Interacting]
  6. ACYCLOVIR [Interacting]
  7. OMEPRAZOLE [Interacting]
  8. AMBISOME [Interacting]
  9. DUPHALAC [Interacting]
  10. LEVOFLOXACIN [Suspect]
  11. CEFEPIME [Interacting]
  12. PIPERACILLIN AND TAZOBACTAM [Interacting]
  13. FUROSEMIDE [Interacting]
  14. HEPARIN SODIUM [Interacting]
  15. POLARAMINE [Interacting]
  16. MEROPENEM [Interacting]
  17. VESANOID [Interacting]
  18. CLOXACILLIN SODIUM [Interacting]
  19. UROKINASE [Interacting]
  20. CUBICIN [Interacting]
     Dosage: 350 MG, QD
     Route: 042
     Dates: start: 20110910, end: 20110914

REACTIONS (2)
  - MYOSITIS [None]
  - DRUG INTERACTION [None]
